FAERS Safety Report 21163653 (Version 3)
Quarter: 2022Q3

REPORT INFORMATION
  Report Type: Report from Study
  Country: CL (occurrence: CL)
  Receive Date: 20220802
  Receipt Date: 20220927
  Transmission Date: 20221027
  Serious: No
  Sender: FDA-Public Use
  Company Number: CL-BRISTOL-MYERS SQUIBB COMPANY-BMS-2021-025177

PATIENT
  Age: 57 Year
  Sex: Male
  Weight: 74.5 kg

DRUGS (2)
  1. PLACEBO [Suspect]
     Active Substance: UNSPECIFIED INGREDIENT
     Indication: Renal cell carcinoma
     Dosage: PRIOR TO THE EVENT ONSET RECEIVED HIS MOST RECENT DOSE ON 07-JAN-2021. MOST RECENT DOSE ON 14-JAN-20
     Route: 048
     Dates: start: 20201106
  2. IPILIMUMAB [Suspect]
     Active Substance: IPILIMUMAB
     Indication: Renal cell carcinoma
     Dosage: MOST RECENT DOSE ON 14-JAN-2021. INTERRUPTED ON 27-JAN-2021. ON AN UNSPECIFIED DATE IN JAN-2021, THE
     Route: 042
     Dates: start: 20201106

REACTIONS (3)
  - Diarrhoea [Recovered/Resolved]
  - Lipase increased [Recovering/Resolving]
  - Amylase increased [Recovering/Resolving]

NARRATIVE: CASE EVENT DATE: 20210127
